FAERS Safety Report 4512388-1 (Version None)
Quarter: 2004Q4

REPORT INFORMATION
  Report Type: 
  Country: None (occurrence: None)
  Receive Date: 20041123
  Receipt Date: 20041108
  Transmission Date: 20050328
  Serious: Yes (Death)
  Sender: FDA-Public Use
  Company Number: 2004-0007729

PATIENT
  Age: 37 Year
  Sex: Male

DRUGS (4)
  1. VIREAD [Suspect]
     Indication: HIV INFECTION
     Dosage: 300 MG, 1 IN 1 D, ORAL
     Route: 048
  2. LOPINAVIR W/RITONAVIR (KALETRA) [Concomitant]
  3. INDINAVIR (INDINAVIR) [Concomitant]
  4. LAMIVUDINE (LAMIVUDINE) [Concomitant]

REACTIONS (7)
  - ANGIOCENTRIC LYMPHOMA [None]
  - BRAIN COMPRESSION [None]
  - CENTRAL NERVOUS SYSTEM LYMPHOMA [None]
  - CONVULSION [None]
  - GENERAL PHYSICAL HEALTH DETERIORATION [None]
  - IMMUNE RECONSTITUTION SYNDROME [None]
  - THERAPY NON-RESPONDER [None]
